FAERS Safety Report 20586174 (Version 1)
Quarter: 2022Q1

REPORT INFORMATION
  Report Type: Other
  Country: US (occurrence: None)
  Receive Date: 20220313
  Receipt Date: 20220313
  Transmission Date: 20220423
  Serious: Yes (Hospitalization)
  Sender: FDA-Public Use
  Company Number: US-ROCHE-3039269

PATIENT
  Age: 60 Year
  Sex: Male
  Weight: 104.42 kg

DRUGS (9)
  1. OCREVUS [Suspect]
     Active Substance: OCRELIZUMAB
     Indication: Primary progressive multiple sclerosis
     Dosage: STARTED 2.5 TO 3 YEARS AGO?DATE OF TREATMENT: 05/JUL/2018, 19/JUL/2018, 04/AUG/2021
     Route: 042
  2. TRAZODONE [Concomitant]
     Active Substance: TRAZODONE HYDROCHLORIDE
  3. BACLOFEN [Concomitant]
     Active Substance: BACLOFEN
  4. ATORVASTATIN [Concomitant]
     Active Substance: ATORVASTATIN
  5. METFORMIN [Concomitant]
     Active Substance: METFORMIN HYDROCHLORIDE
     Dosage: STARTED ABOUT 4 YEARS AGO
     Route: 048
  6. LISINOPRIL [Concomitant]
     Active Substance: LISINOPRIL
  7. AMPYRA [Concomitant]
     Active Substance: DALFAMPRIDINE
  8. TAMSULOSIN [Concomitant]
     Active Substance: TAMSULOSIN
  9. PFIZER-BIONTECH COVID-19 VACCINE [Concomitant]
     Active Substance: TOZINAMERAN

REACTIONS (1)
  - COVID-19 [Recovered/Resolved]

NARRATIVE: CASE EVENT DATE: 20220127
